FAERS Safety Report 4860783-3 (Version None)
Quarter: 2005Q4

REPORT INFORMATION
  Report Type: 
  Country: None (occurrence: None)
  Receive Date: 20051220
  Receipt Date: 20051209
  Transmission Date: 20060501
  Serious: Yes (Other)
  Sender: FDA-Public Use
  Company Number: 2005PK02387

PATIENT
  Age: 16920 Day
  Sex: Female
  Weight: 45 kg

DRUGS (4)
  1. NEXIUM [Suspect]
     Indication: GASTRITIS
     Route: 048
     Dates: start: 20050912, end: 20050915
  2. SANDIMMUNE [Concomitant]
     Indication: RENAL TRANSPLANT
     Route: 048
  3. METHYLPREDNISOLONE [Concomitant]
     Indication: POLYARTHRITIS
     Route: 048
  4. AZATHIOPRINE [Concomitant]
     Indication: POLYARTHRITIS
     Route: 048

REACTIONS (3)
  - DELUSION [None]
  - EXCITABILITY [None]
  - MANIA [None]
